FAERS Safety Report 9311083 (Version 3)
Quarter: 2013Q3

REPORT INFORMATION
  Report Type: Spontaneous
  Country: US (occurrence: US)
  Receive Date: 20130528
  Receipt Date: 20130812
  Transmission Date: 20140515
  Serious: No
  Sender: FDA-Public Use
  Company Number: US-PFIZER INC-2013160840

PATIENT
  Age: 56 Year
  Sex: Female
  Weight: 49.89 kg

DRUGS (3)
  1. NEURONTIN [Suspect]
     Indication: NEURALGIA
     Dosage: 600 MG, UNK
  2. NEURONTIN [Suspect]
     Indication: PAIN
     Dosage: UNK
  3. NEURONTIN [Suspect]
     Dosage: UNK

REACTIONS (6)
  - Hypotension [Unknown]
  - Feeling hot [Unknown]
  - Discomfort [Unknown]
  - Hot flush [Unknown]
  - Pyrexia [Unknown]
  - Malaise [Unknown]
